FAERS Safety Report 5600147-8 (Version None)
Quarter: 2008Q1

REPORT INFORMATION
  Report Type: 
  Country: None (occurrence: None)
  Receive Date: 20071226
  Receipt Date: 20070712
  Transmission Date: 20080703
  Serious: Yes (Other)
  Sender: FDA-Public Use
  Company Number: 2007-0012671

PATIENT
  Sex: Male
  Weight: 83.0083 kg

DRUGS (11)
  1. VIREAD [Suspect]
     Indication: HIV INFECTION
     Dosage: 300 MG, 1 IN 1 D, ORAL
     Route: 048
     Dates: start: 20050203, end: 20060815
  2. EMTRICITABINE (EMTRICITABINE) [Concomitant]
  3. EFAVIRENZ [Concomitant]
  4. GLUCOPHAGE [Concomitant]
  5. PLENDIL [Concomitant]
  6. VALIUM [Concomitant]
  7. TEMAZEPAM [Concomitant]
  8. IMODIUM [Concomitant]
  9. HYDROCHLOROTHIAZIDE [Concomitant]
  10. CIALIS [Concomitant]
  11. TYLENOL/CODEINE (PANJADEINE CO) [Concomitant]

REACTIONS (1)
  - BLOOD CREATININE INCREASED [None]
